FAERS Safety Report 4277288-3 (Version None)
Quarter: 2004Q1

REPORT INFORMATION
  Report Type: 
  Country: None (occurrence: None)
  Receive Date: 20040120
  Receipt Date: 20040105
  Transmission Date: 20041129
  Serious: No
  Sender: FDA-Public Use
  Company Number: 2004GB00010

PATIENT
  Age: 75 Year
  Sex: Female

DRUGS (5)
  1. CRESTOR [Suspect]
     Indication: HYPERCHOLESTEROLAEMIA
     Dosage: 20 MG HS PO
     Route: 048
  2. PERINDOPRIL [Concomitant]
  3. TEMAZEPAM [Concomitant]
  4. CALCICHEW-D3 [Concomitant]
  5. AMLODIPINE BESYLATE [Concomitant]

REACTIONS (2)
  - INSOMNIA [None]
  - SLEEP DISORDER [None]
